FAERS Safety Report 11368733 (Version 2)
Quarter: 2015Q3

REPORT INFORMATION
  Report Type: Report from Study
  Country: GB (occurrence: GB)
  Receive Date: 20150812
  Receipt Date: 20150820
  Transmission Date: 20151125
  Serious: Yes (Other)
  Sender: FDA-Public Use
  Company Number: GB-ROCHE-1619747

PATIENT

DRUGS (2)
  1. LENALIDOMIDE [Suspect]
     Active Substance: LENALIDOMIDE
     Indication: LYMPHOMA
     Route: 065
  2. RITUXIMAB [Suspect]
     Active Substance: RITUXIMAB
     Indication: LYMPHOMA
     Route: 065

REACTIONS (6)
  - Neutropenia [Unknown]
  - Pulmonary embolism [Unknown]
  - Fatigue [Unknown]
  - Diarrhoea [Unknown]
  - Bacterial diarrhoea [Unknown]
  - Graft versus host disease in skin [Unknown]
